FAERS Safety Report 5031010-1 (Version None)
Quarter: 2006Q2

REPORT INFORMATION
  Report Type: 
  Country: None (occurrence: None)
  Receive Date: 20060621
  Receipt Date: 20060418
  Transmission Date: 20061013
  Serious: No
  Sender: FDA-Public Use
  Company Number: US-GLAXOSMITHKLINE-A0602179A

PATIENT
  Age: 46 Year
  Sex: Female

DRUGS (3)
  1. FLOVENT [Suspect]
     Indication: ACUTE PULMONARY HISTOPLASMOSIS
     Dosage: 2PCT TWICE PER DAY
     Route: 055
     Dates: start: 20060401
  2. FORADIL [Concomitant]
  3. FLONASE [Concomitant]

REACTIONS (1)
  - CHEST DISCOMFORT [None]
